FAERS Safety Report 25856684 (Version 2)
Quarter: 2025Q4

REPORT INFORMATION
  Report Type: Spontaneous
  Country: GB (occurrence: GB)
  Receive Date: 20250929
  Receipt Date: 20251210
  Transmission Date: 20260118
  Serious: Yes (Life-Threatening, Hospitalization, Other)
  Sender: IPCA
  Company Number: GB-IPCA LABORATORIES LIMITED-IPC-2025-GB-002615

PATIENT

DRUGS (18)
  1. SERTRALINE [Suspect]
     Active Substance: SERTRALINE HYDROCHLORIDE
     Indication: Depression
     Dosage: 200 MILLIGRAM, QD
     Route: 065
  2. SERTRALINE [Suspect]
     Active Substance: SERTRALINE HYDROCHLORIDE
     Dosage: UNK
     Route: 065
  3. METFORMIN [Suspect]
     Active Substance: METFORMIN HYDROCHLORIDE
     Indication: Diabetes mellitus
     Dosage: 500 MILLIGRAM, BID
     Route: 048
  4. METFORMIN [Suspect]
     Active Substance: METFORMIN HYDROCHLORIDE
     Indication: Gestational diabetes
  5. BUPIVACAINE [Suspect]
     Active Substance: BUPIVACAINE
     Indication: Spinal anaesthesia
     Dosage: 0.5 % 2.5 MILLILITER
     Route: 037
  6. DIAMORPHINE [Suspect]
     Active Substance: DIAMORPHINE
     Indication: Spinal anaesthesia
     Dosage: 300 MICROGRAM
     Route: 037
  7. PHENYLEPHRINE [Suspect]
     Active Substance: PHENYLEPHRINE
     Indication: Spinal anaesthesia
     Dosage: 50 MICROGRAM /MINUTE
     Route: 065
  8. CEFUROXIME [Suspect]
     Active Substance: CEFUROXIME
     Indication: Spinal anaesthesia
     Dosage: 1.5 GRAM
     Route: 042
  9. EPINEPHRINE BITARTRATE [Suspect]
     Active Substance: EPINEPHRINE BITARTRATE
     Indication: Anaphylactic reaction
     Dosage: 500 MICROGRAM
     Route: 042
  10. HYDROCORTISONE [Suspect]
     Active Substance: HYDROCORTISONE
     Indication: Anaphylactic reaction
     Dosage: 100 MILLIGRAM
     Route: 042
  11. PROPOFOL [Suspect]
     Active Substance: PROPOFOL
     Indication: Anaphylactic reaction
     Dosage: 200 MILLIGRAM
     Route: 065
  12. SUCCINYLCHOLINE CHLORIDE [Suspect]
     Active Substance: SUCCINYLCHOLINE CHLORIDE
     Indication: Anaphylactic reaction
     Dosage: 100 MILLIGRAM
     Route: 065
  13. INSULIN HUMAN [Suspect]
     Active Substance: INSULIN HUMAN
     Indication: Diabetes mellitus
     Dosage: 4 INTERNATIONAL UNIT
     Route: 065
  14. EPINEPHRINE [Suspect]
     Active Substance: EPINEPHRINE
     Indication: Anaphylactic reaction
     Dosage: 500 MICROGRAM
     Route: 042
  15. INSULIN HUMAN [Suspect]
     Active Substance: INSULIN HUMAN
     Indication: Gestational diabetes
     Dosage: 4 INTERNATIONAL UNIT
     Route: 065
  16. MAGNESIUM [Suspect]
     Active Substance: MAGNESIUM
     Indication: Product used for unknown indication
     Dosage: UNK
     Route: 042
  17. ALFENTANIL [Suspect]
     Active Substance: ALFENTANIL
     Indication: Sedation
     Dosage: UNK
     Route: 042
  18. LEVETIRACETAM [Suspect]
     Active Substance: LEVETIRACETAM
     Indication: Seizure
     Dosage: UNK
     Route: 042

REACTIONS (9)
  - Serotonin syndrome [Recovering/Resolving]
  - Tachyarrhythmia [Recovered/Resolved]
  - Bradyarrhythmia [Recovered/Resolved]
  - Respiratory acidosis [Recovered/Resolved]
  - Metabolic acidosis [Recovered/Resolved]
  - Maternal exposure during delivery [Recovered/Resolved]
  - Normal newborn [Recovered/Resolved]
  - Cardiac arrest [Unknown]
  - Exposure during pregnancy [Unknown]
